FAERS Safety Report 4510808-X (Version None)
Quarter: 2004Q4

REPORT INFORMATION
  Report Type: 
  Country: None (occurrence: None)
  Receive Date: 20041124
  Receipt Date: 20030605
  Transmission Date: 20050328
  Serious: Yes (Hospitalization, Disabling, Other)
  Sender: FDA-Public Use
  Company Number: US-MERCK-0306USA00881

PATIENT
  Age: 46 Year
  Sex: Female
  Weight: 82 kg

DRUGS (4)
  1. VIOXX [Suspect]
     Indication: ARTHRITIS
     Route: 048
     Dates: start: 20010201, end: 20010101
  2. VIOXX [Suspect]
     Route: 048
     Dates: start: 19991027, end: 20000401
  3. VIOXX [Suspect]
     Indication: PAIN
     Route: 048
     Dates: start: 20010201, end: 20010101
  4. VIOXX [Suspect]
     Route: 048
     Dates: start: 19991027, end: 20000401

REACTIONS (44)
  - ABDOMINAL ADHESIONS [None]
  - ADJUSTMENT DISORDER [None]
  - ADNEXA UTERI MASS [None]
  - ADVERSE EVENT [None]
  - ANGINA PECTORIS [None]
  - ANXIETY DISORDER [None]
  - APPENDIX DISORDER [None]
  - BACK PAIN [None]
  - BREAST ABSCESS [None]
  - CHEST PAIN [None]
  - DIABETES MELLITUS NON-INSULIN-DEPENDENT [None]
  - DIZZINESS [None]
  - DUODENITIS [None]
  - DYSURIA [None]
  - EMOTIONAL DISTRESS [None]
  - EXOSTOSIS [None]
  - FAECAL OCCULT BLOOD POSITIVE [None]
  - GASTRIC POLYPS [None]
  - GASTRITIS [None]
  - GASTROOESOPHAGEAL REFLUX DISEASE [None]
  - HEADACHE [None]
  - HEPATIC CIRRHOSIS [None]
  - HOT FLUSH [None]
  - HYPERTENSION [None]
  - ISCHAEMIA [None]
  - LOCALISED OSTEOARTHRITIS [None]
  - MAJOR DEPRESSION [None]
  - MUSCLE CRAMP [None]
  - NAUSEA [None]
  - NECK PAIN [None]
  - NEURODERMATITIS [None]
  - OBESITY [None]
  - PANCREATITIS CHRONIC [None]
  - PLANTAR FASCIITIS [None]
  - PRURITUS GENERALISED [None]
  - RADICULITIS LUMBOSACRAL [None]
  - REFLEX SYMPATHETIC DYSTROPHY [None]
  - SYNCOPE [None]
  - TIBIA FRACTURE [None]
  - UPPER RESPIRATORY TRACT INFECTION [None]
  - URINARY INCONTINENCE [None]
  - URINARY TRACT INFECTION [None]
  - VAGINAL CANDIDIASIS [None]
  - VISUAL DISTURBANCE [None]
